FAERS Safety Report 4389989-7 (Version None)
Quarter: 2004Q2

REPORT INFORMATION
  Report Type: 
  Country: None (occurrence: None)
  Receive Date: 20040630
  Receipt Date: 20040614
  Transmission Date: 20050107
  Serious: Yes (Hospitalization)
  Sender: FDA-Public Use
  Company Number: B0336032A

PATIENT
  Age: 37 Year
  Sex: Female

DRUGS (2)
  1. ZOVIRAX [Suspect]
     Indication: PROPHYLAXIS
     Dosage: 800 MG/ THREE TIMES PER DAY/ORAL
     Route: 048
  2. ZOVIRAX [Suspect]
     Indication: HERPES ZOSTER
     Dosage: SEE DOSAGE TEXT/ INTAVENOUS
     Route: 042

REACTIONS (9)
  - BLINDNESS UNILATERAL [None]
  - DISEASE RECURRENCE [None]
  - DRUG RESISTANCE [None]
  - HERPES ZOSTER [None]
  - LUNG DISORDER [None]
  - NECROSIS [None]
  - RETINITIS [None]
  - TREATMENT NONCOMPLIANCE [None]
  - VIRAEMIA [None]
